FAERS Safety Report 8120633-9 (Version None)
Quarter: 2012Q1

REPORT INFORMATION
  Report Type: 
  Country: None (occurrence: None)
  Receive Date: 20120207
  Receipt Date: 20120203
  Transmission Date: 20120608
  Serious: Yes (Hospitalization, Disabling)
  Sender: FDA-Public Use
  Company Number: DE-ROCHE-1037229

PATIENT
  Age: 57 Year
  Sex: Female

DRUGS (5)
  1. HERCEPTIN [Suspect]
     Indication: BREAST CANCER
  2. CYCLOPHOSPHAMIDE [Concomitant]
     Indication: BREAST CANCER
  3. FLUOROURACIL [Concomitant]
     Indication: BREAST CANCER
  4. TAXOTERE [Concomitant]
     Indication: BREAST CANCER
  5. EPIRUBICIN [Concomitant]
     Indication: BREAST CANCER

REACTIONS (2)
  - PNEUMONIA FUNGAL [None]
  - PULMONARY FIBROSIS [None]
